FAERS Safety Report 4915779-X (Version None)
Quarter: 2006Q1

REPORT INFORMATION
  Report Type: 
  Country: None (occurrence: None)
  Receive Date: 20060217
  Receipt Date: 20060119
  Transmission Date: 20060701
  Serious: Yes (Death, Other)
  Sender: FDA-Public Use
  Company Number: US-BRISTOL-MYERS SQUIBB COMPANY-13253679

PATIENT
  Age: 33 Year
  Sex: Male

DRUGS (3)
  1. ABILIFY [Suspect]
     Indication: BIPOLAR DISORDER
     Route: 048
  2. PERCOCET [Interacting]
     Indication: BACK PAIN
     Route: 048
     Dates: start: 20040101, end: 20041201
  3. REMERON [Concomitant]
     Indication: BIPOLAR DISORDER
     Route: 048

REACTIONS (2)
  - DRUG INTERACTION [None]
  - OVERDOSE [None]
